FAERS Safety Report 15723602 (Version 2)
Quarter: 2018Q4

REPORT INFORMATION
  Report Type: Spontaneous
  Country: GB (occurrence: GB)
  Receive Date: 20181214
  Receipt Date: 20181227
  Transmission Date: 20190205
  Serious: Yes (Other)
  Sender: FDA-Public Use
  Company Number: GB-SAKK-2018SA339312AA

PATIENT
  Age: 61 Year
  Sex: Female

DRUGS (4)
  1. PENICILLIN V [PHENOXYMETHYLPENICILLIN] [Concomitant]
     Dosage: 250 MG, BID
     Route: 065
  2. CEREZYME [Suspect]
     Active Substance: IMIGLUCERASE
     Dosage: UNK
     Dates: start: 1992
  3. OMEPRAZOLE. [Concomitant]
     Active Substance: OMEPRAZOLE
     Indication: HIATUS HERNIA
     Dosage: 20 MG, QD
     Route: 065
  4. DULOXETINE. [Concomitant]
     Active Substance: DULOXETINE
     Dosage: 90 MG, QD
     Route: 065

REACTIONS (1)
  - Breast cancer [Unknown]
